FAERS Safety Report 23133280 (Version 1)
Quarter: 2023Q4

REPORT INFORMATION
  Report Type: Spontaneous
  Country: US (occurrence: US)
  Receive Date: 20231101
  Receipt Date: 20231101
  Transmission Date: 20240110
  Serious: Yes (Hospitalization)
  Sender: FDA-Public Use
  Company Number: US-drreddys-LIT/USA/23/0182211

PATIENT
  Age: 80 Year
  Sex: Male

DRUGS (9)
  1. QUETIAPINE [Suspect]
     Active Substance: QUETIAPINE
     Indication: Rapid eye movement sleep behaviour disorder
     Dosage: 2.5MG AT BEDTIME
  2. QUETIAPINE [Suspect]
     Active Substance: QUETIAPINE
     Indication: Post-traumatic stress disorder
  3. RISPERIDONE [Suspect]
     Active Substance: RISPERIDONE
     Indication: Psychotic disorder
  4. DONEPEZIL HYDROCHLORIDE [Suspect]
     Active Substance: DONEPEZIL HYDROCHLORIDE
     Indication: Psychotic disorder
  5. PRAZOSIN [Concomitant]
     Active Substance: PRAZOSIN
     Indication: Psychotic disorder
  6. TEMAZEPAM [Concomitant]
     Active Substance: TEMAZEPAM
     Indication: Psychotic disorder
  7. SERTRALINE [Concomitant]
     Active Substance: SERTRALINE HYDROCHLORIDE
     Indication: Psychotic disorder
  8. CLONAZEPAM [Concomitant]
     Active Substance: CLONAZEPAM
     Indication: Psychotic disorder
  9. MELATONIN [Concomitant]
     Active Substance: MELATONIN
     Indication: Psychotic disorder

REACTIONS (6)
  - Psychotic disorder [Recovering/Resolving]
  - Dementia with Lewy bodies [Recovering/Resolving]
  - Paradoxical drug reaction [Unknown]
  - Anxiety [Unknown]
  - Aggression [Unknown]
  - Drug ineffective [Unknown]
